FAERS Safety Report 17859978 (Version 1)
Quarter: 2020Q2

REPORT INFORMATION
  Report Type: Spontaneous
  Country: US (occurrence: US)
  Receive Date: 20200604
  Receipt Date: 20200604
  Transmission Date: 20200714
  Serious: No
  Sender: FDA-Public Use
  Company Number: None

PATIENT
  Age: 57 Year
  Sex: Female
  Weight: 67.5 kg

DRUGS (6)
  1. CELECOXIB 200MG [Concomitant]
     Active Substance: CELECOXIB
  2. WELLBUTRIN [Concomitant]
     Active Substance: BUPROPION HYDROCHLORIDE
  3. CIPROFLOXACIN. [Suspect]
     Active Substance: CIPROFLOXACIN
     Indication: URINARY TRACT INFECTION
     Dosage: ?          QUANTITY:1 CAPSULE(S);?
     Route: 048
     Dates: start: 20200601, end: 20200603
  4. THYROID 30MG [Concomitant]
  5. PROGESTERONE 200MG [Concomitant]
  6. FEMQUIL [Concomitant]

REACTIONS (3)
  - Oropharyngeal pain [None]
  - Stomatitis [None]
  - Swollen tongue [None]

NARRATIVE: CASE EVENT DATE: 20200601
